FAERS Safety Report 20490461 (Version 1)
Quarter: 2022Q1

REPORT INFORMATION
  Report Type: Spontaneous
  Country: None (occurrence: US)
  Receive Date: 20220218
  Receipt Date: 20220218
  Transmission Date: 20220423
  Serious: No
  Sender: FDA-Public Use
  Company Number: US-Nephron Sterile Compounding Center-2126007

PATIENT
  Age: 62 Year
  Sex: Female
  Weight: 63 kg

DRUGS (12)
  1. ROCURONIUM BROMIDE [Suspect]
     Active Substance: ROCURONIUM BROMIDE
     Indication: Endotracheal intubation
     Route: 042
     Dates: start: 20220208, end: 20220208
  2. VANCOMYCIN HYDROCHLORIDE [Concomitant]
     Active Substance: VANCOMYCIN HYDROCHLORIDE
     Route: 042
     Dates: start: 20220208, end: 20220208
  3. GENTAMICIN SULFATE [Concomitant]
     Active Substance: GENTAMICIN SULFATE
     Route: 042
     Dates: start: 20220208, end: 20220208
  4. CEFAZOLIN SODIUM [Concomitant]
     Active Substance: CEFAZOLIN SODIUM
     Route: 042
     Dates: start: 20220208, end: 20220208
  5. REMIFENTANIL HYDROCHLORIDE [Concomitant]
     Active Substance: REMIFENTANIL HYDROCHLORIDE
     Route: 042
     Dates: start: 20220208, end: 20220208
  6. PROPOFOL [Concomitant]
     Active Substance: PROPOFOL
     Route: 042
     Dates: start: 20220208, end: 20220208
  7. PHENYLEPHRINE [Concomitant]
     Active Substance: PHENYLEPHRINE HYDROCHLORIDE
     Route: 042
     Dates: start: 20220208, end: 20220208
  8. MIDAZOLAM [Concomitant]
     Active Substance: MIDAZOLAM
     Route: 042
     Dates: start: 20220208, end: 20220208
  9. MAGNESIUM SULFATE [Concomitant]
     Active Substance: MAGNESIUM SULFATE
     Route: 042
     Dates: start: 20220208, end: 20220208
  10. EPHEDRINE SULFATE [Concomitant]
     Active Substance: EPHEDRINE SULFATE
     Route: 042
     Dates: start: 20220208, end: 20220208
  11. DEXAMETHASONE [Concomitant]
     Active Substance: DEXAMETHASONE
     Route: 042
     Dates: start: 20220208, end: 20220208
  12. CALCIUM GLUCONATE [Concomitant]
     Active Substance: CALCIUM GLUCONATE
     Route: 042
     Dates: start: 20220208, end: 20220208

REACTIONS (1)
  - Drug ineffective [Recovered/Resolved]

NARRATIVE: CASE EVENT DATE: 20220208
